FAERS Safety Report 7733004-1 (Version None)
Quarter: 2011Q3

REPORT INFORMATION
  Report Type: 
  Country: None (occurrence: None)
  Receive Date: 20110907
  Receipt Date: 20110826
  Transmission Date: 20111222
  Serious: Yes (Hospitalization, Other)
  Sender: FDA-Public Use
  Company Number: JP-JNJFOC-20110706669

PATIENT
  Age: 86 Year
  Sex: Female
  Weight: 40 kg

DRUGS (6)
  1. GALANTAMINE HYDROBROMIDE [Suspect]
     Route: 048
     Dates: start: 20110403, end: 20110502
  2. AMLODIPINE [Concomitant]
     Indication: HYPERTENSION
     Route: 048
     Dates: start: 20100122, end: 20110707
  3. LANSOPRAZOLE [Concomitant]
     Indication: GASTROOESOPHAGEAL REFLUX DISEASE
     Route: 048
     Dates: start: 20100122
  4. GALANTAMINE HYDROBROMIDE [Suspect]
     Indication: DEMENTIA
     Route: 048
     Dates: start: 20110503, end: 20110707
  5. SENNOSIDE [Concomitant]
     Route: 048
  6. MAGMITT [Concomitant]
     Indication: CONSTIPATION
     Route: 048
     Dates: start: 20100304

REACTIONS (2)
  - RHABDOMYOLYSIS [None]
  - URINARY TRACT INFECTION [None]
